FAERS Safety Report 6393344-8 (Version None)
Quarter: 2009Q4

REPORT INFORMATION
  Report Type: 
  Country: None (occurrence: None)
  Receive Date: 20091008
  Receipt Date: 20090930
  Transmission Date: 20100525
  Serious: Yes (Hospitalization)
  Sender: FDA-Public Use
  Company Number: CH-JNJFOC-20090908578

PATIENT
  Age: 77 Year
  Sex: Female

DRUGS (16)
  1. HALDOL [Suspect]
     Route: 048
     Dates: start: 20090115, end: 20090401
  2. HALDOL [Suspect]
     Route: 048
     Dates: start: 20090115, end: 20090401
  3. HALDOL [Suspect]
     Route: 048
     Dates: start: 20090115, end: 20090401
  4. HALDOL [Suspect]
     Route: 048
     Dates: start: 20090115, end: 20090401
  5. HALDOL [Suspect]
     Route: 048
     Dates: start: 20090115, end: 20090401
  6. HALDOL [Suspect]
     Indication: RESTLESSNESS
     Route: 048
     Dates: start: 20090115, end: 20090401
  7. PHENYTOIN [Suspect]
     Route: 048
     Dates: end: 20090405
  8. PHENYTOIN [Suspect]
     Route: 048
     Dates: end: 20090405
  9. PHENYTOIN [Suspect]
     Route: 048
     Dates: end: 20090405
  10. PHENYTOIN [Suspect]
     Route: 048
     Dates: end: 20090405
  11. PHENYTOIN [Suspect]
     Indication: RESTLESSNESS
     Route: 048
     Dates: end: 20090405
  12. AXURA [Suspect]
     Route: 048
     Dates: end: 20090228
  13. AXURA [Suspect]
     Route: 048
     Dates: end: 20090228
  14. AXURA [Suspect]
     Indication: RESTLESSNESS
     Route: 048
     Dates: end: 20090228
  15. CIPRALEX [Suspect]
     Route: 048
     Dates: end: 20090217
  16. CIPRALEX [Suspect]
     Indication: RESTLESSNESS
     Route: 048
     Dates: end: 20090217

REACTIONS (1)
  - DELIRIUM [None]
